FAERS Safety Report 12911734 (Version 1)
Quarter: 2016Q4

REPORT INFORMATION
  Report Type: Spontaneous
  Country: HN (occurrence: HN)
  Receive Date: 20161104
  Receipt Date: 20161104
  Transmission Date: 20170207
  Serious: Yes (Death, Other)
  Sender: FDA-Public Use
  Company Number: HN-GLAXOSMITHKLINE-HN2016GSK159126

PATIENT
  Age: 76 Year
  Sex: Male

DRUGS (4)
  1. CORTICOSTEROIDS FOR INHALATION (NOS) [Concomitant]
  2. ANORO ELLIPTA [Suspect]
     Active Substance: UMECLIDINIUM BROMIDE\VILANTEROL TRIFENATATE
     Indication: PRODUCT USED FOR UNKNOWN INDICATION
  3. BRONCHODILATORS [Concomitant]
     Active Substance: UNSPECIFIED INGREDIENT
  4. RELVAR ELLIPTA [Suspect]
     Active Substance: FLUTICASONE FUROATE\VILANTEROL TRIFENATATE
     Indication: PRODUCT USED FOR UNKNOWN INDICATION

REACTIONS (1)
  - Hospitalisation [Fatal]
